FAERS Safety Report 5600318-0 (Version None)
Quarter: 2008Q1

REPORT INFORMATION
  Report Type: 
  Country: None (occurrence: None)
  Receive Date: 20080123
  Receipt Date: 20080118
  Transmission Date: 20080703
  Serious: Yes (Hospitalization, Other)
  Sender: FDA-Public Use
  Company Number: HQWYE170624JUL03

PATIENT
  Sex: Female
  Weight: 78 kg

DRUGS (1)
  1. PREMPRO [Suspect]
     Dosage: UNSPECIFIED
     Route: 048
     Dates: start: 19950101, end: 20010701

REACTIONS (1)
  - PORTAL VEIN THROMBOSIS [None]
